FAERS Safety Report 5270667-7 (Version None)
Quarter: 2007Q1

REPORT INFORMATION
  Report Type: 
  Country: None (occurrence: None)
  Receive Date: 20070321
  Receipt Date: 20070306
  Transmission Date: 20070707
  Serious: Yes (Other)
  Sender: FDA-Public Use
  Company Number: PHEH2007US02834

PATIENT
  Age: 74 Year
  Sex: Female

DRUGS (4)
  1. METOPROLOL TARTRATE [Suspect]
     Dosage: 100 MG, BID
  2. FELODIPINE [Concomitant]
     Dosage: 5 MG, QD
  3. FUROSEMIDE [Concomitant]
     Dosage: 40 UNK, QD
  4. HYTRIN [Concomitant]
     Dosage: UNK, QHS
     Dates: start: 19920101

REACTIONS (4)
  - BALANCE DISORDER [None]
  - CARDIAC PACEMAKER INSERTION [None]
  - CEREBROVASCULAR ACCIDENT [None]
  - DIZZINESS [None]
